FAERS Safety Report 11959504 (Version 1)
Quarter: 2016Q1

REPORT INFORMATION
  Report Type: Spontaneous
  Country: US (occurrence: US)
  Receive Date: 20160126
  Receipt Date: 20160126
  Transmission Date: 20160526
  Serious: No
  Sender: FDA-Public Use
  Company Number: US-009507513-1601USA007333

PATIENT
  Sex: Female

DRUGS (6)
  1. PULMICORT TURBUHALER [Suspect]
     Active Substance: BUDESONIDE
  2. FLOVENT [Suspect]
     Active Substance: FLUTICASONE PROPIONATE
  3. ADVAIR HFA [Suspect]
     Active Substance: FLUTICASONE PROPIONATE\SALMETEROL XINAFOATE
  4. SINGULAIR [Suspect]
     Active Substance: MONTELUKAST SODIUM
     Route: 048
  5. FORADIL [Suspect]
     Active Substance: FORMOTEROL FUMARATE
  6. SEREVENT DISKUS [Suspect]
     Active Substance: SALMETEROL XINAFOATE

REACTIONS (2)
  - Pruritus [Unknown]
  - Urticaria [Unknown]
